FAERS Safety Report 15743376 (Version 1)
Quarter: 2018Q4

REPORT INFORMATION
  Report Type: Spontaneous
  Country: NL (occurrence: NL)
  Receive Date: 20181220
  Receipt Date: 20181220
  Transmission Date: 20190205
  Serious: Yes (Life-Threatening, Hospitalization, Other)
  Sender: FDA-Public Use
  Company Number: NL-ACTELION-A-CH2018-183469

PATIENT
  Age: 43 Year
  Sex: Male
  Weight: 56 kg

DRUGS (5)
  1. OPSUMIT [Suspect]
     Active Substance: MACITENTAN
     Indication: PULMONARY ARTERIAL HYPERTENSION
     Dosage: 10 MG, QD
     Route: 048
     Dates: start: 20181117, end: 20181207
  2. PANTOPRAZOL [Concomitant]
     Active Substance: PANTOPRAZOLE SODIUM
     Dosage: 40 MG, UNK
  3. FUROSEMIDE AL [Concomitant]
     Dosage: 40 MG, UNK
     Route: 048
  4. SALBUTAMOL [Concomitant]
     Active Substance: ALBUTEROL
     Dosage: 1/0.2MG/ML
     Route: 055
  5. ASCAL D [Concomitant]
     Dosage: 100 UNK, UNK
     Route: 048

REACTIONS (17)
  - Aspartate aminotransferase increased [Not Recovered/Not Resolved]
  - Pulmonary arterial pressure increased [Unknown]
  - Haemoglobin decreased [Unknown]
  - Dyspnoea [Unknown]
  - Hypoxia [Unknown]
  - Condition aggravated [Unknown]
  - Alanine aminotransferase increased [Not Recovered/Not Resolved]
  - Cough [Unknown]
  - Anaemia [Unknown]
  - Somnolence [Unknown]
  - Respiratory tract infection [Unknown]
  - Left-to-right cardiac shunt [Unknown]
  - Pulmonary arterial hypertension [Unknown]
  - Oxygen saturation decreased [Unknown]
  - Hepatic failure [Not Recovered/Not Resolved]
  - Hypercapnia [Unknown]
  - Concomitant disease progression [Unknown]

NARRATIVE: CASE EVENT DATE: 20181204
